FAERS Safety Report 4621040-3 (Version None)
Quarter: 2005Q1

REPORT INFORMATION
  Report Type: 
  Country: None (occurrence: None)
  Receive Date: 20050328
  Receipt Date: 20050318
  Transmission Date: 20050727
  Serious: Yes (Hospitalization, Disabling, Other)
  Sender: FDA-Public Use
  Company Number: US-MERCK-0503USA03442

PATIENT
  Age: 44 Year
  Sex: Female

DRUGS (12)
  1. ZOCOR [Suspect]
     Route: 048
     Dates: start: 20050201, end: 20050318
  2. ZOCOR [Suspect]
     Route: 048
     Dates: start: 20000101, end: 20020801
  3. ZOCOR [Suspect]
     Route: 048
     Dates: start: 20020801, end: 20040601
  4. ZOCOR [Suspect]
     Route: 048
     Dates: start: 20040601, end: 20050201
  5. LOPID [Concomitant]
     Route: 065
  6. ACTONEL [Concomitant]
     Route: 065
  7. TOPROL-XL [Concomitant]
     Route: 065
  8. KETOCONAZOLE [Concomitant]
     Route: 065
  9. PROGRAF [Concomitant]
     Route: 065
  10. CELLCEPT [Concomitant]
     Route: 065
  11. ASPIRIN [Concomitant]
     Route: 065
  12. PREVACID [Concomitant]
     Route: 065

REACTIONS (4)
  - BLOOD CREATINE PHOSPHOKINASE INCREASED [None]
  - CEREBROVASCULAR ACCIDENT [None]
  - HEPATIC ENZYME INCREASED [None]
  - PAIN IN EXTREMITY [None]
